FAERS Safety Report 12169570 (Version 1)
Quarter: 2016Q1

REPORT INFORMATION
  Report Type: Report from Study
  Country: KR (occurrence: KR)
  Receive Date: 20160310
  Receipt Date: 20160310
  Transmission Date: 20160526
  Serious: Yes (Hospitalization)
  Sender: FDA-Public Use
  Company Number: KR-B.I. PHARMACEUTICALS,INC./RIDGEFIELD-2016-BI-09021HN

PATIENT
  Age: 61 Year
  Sex: Female
  Weight: 54.1 kg

DRUGS (1)
  1. HM61713 [Suspect]
     Active Substance: OLMUTINIB
     Indication: NON-SMALL CELL LUNG CANCER
     Dosage: 800 MG
     Route: 048
     Dates: start: 20160126

REACTIONS (7)
  - Dyspnoea [None]
  - Pharyngitis [None]
  - Therapy cessation [None]
  - Pyrexia [Recovered/Resolved]
  - Myalgia [None]
  - Cough [None]
  - Influenza like illness [None]

NARRATIVE: CASE EVENT DATE: 20160131
